FAERS Safety Report 7267374-8 (Version None)
Quarter: 2011Q1

REPORT INFORMATION
  Report Type: 
  Country: None (occurrence: None)
  Receive Date: 20110201
  Receipt Date: 20100823
  Transmission Date: 20110831
  Serious: No
  Sender: FDA-Public Use
  Company Number: A0875174A

PATIENT
  Age: 58 Year
  Sex: Female

DRUGS (1)
  1. ARIXTRA [Suspect]
     Indication: DEEP VEIN THROMBOSIS
     Route: 058
     Dates: start: 20100101, end: 20100101

REACTIONS (3)
  - URTICARIA [None]
  - HYPERSENSITIVITY [None]
  - PRURITUS [None]
